FAERS Safety Report 6020329-3 (Version None)
Quarter: 2008Q4

REPORT INFORMATION
  Report Type: 
  Country: None (occurrence: None)
  Receive Date: 20081226
  Receipt Date: 20081222
  Transmission Date: 20090506
  Serious: Yes (Life-Threatening, Other)
  Sender: FDA-Public Use
  Company Number: PHHO2008GB14399

PATIENT
  Sex: Female

DRUGS (2)
  1. PROLEUKIN [Suspect]
     Dosage: 600000 IU/KG, (1 IN 8 HR)
     Route: 042
     Dates: start: 20081125
  2. FLUDARABINE PHOSPHATE [Suspect]
     Indication: GASTRIC CANCER
     Dosage: 25 MG/M2/KG
     Route: 042
     Dates: start: 20081120

REACTIONS (21)
  - CATHETER RELATED COMPLICATION [None]
  - CENTRAL VENOUS CATHETERISATION [None]
  - EPISTAXIS [None]
  - FLUID OVERLOAD [None]
  - HAEMORRHAGE INTRACRANIAL [None]
  - HYPOTENSION [None]
  - LIVER FUNCTION TEST ABNORMAL [None]
  - LUNG CONSOLIDATION [None]
  - NEUTROPENIA [None]
  - NEUTROPENIC SEPSIS [None]
  - NEUTROPHIL COUNT DECREASED [None]
  - OEDEMA [None]
  - OXYGEN SATURATION DECREASED [None]
  - PLATELET COUNT DECREASED [None]
  - PLEURAL EFFUSION [None]
  - PNEUMOTHORAX [None]
  - POST PROCEDURAL HAEMORRHAGE [None]
  - PULMONARY OEDEMA [None]
  - PYREXIA [None]
  - THORACIC CAVITY DRAINAGE [None]
  - WHITE BLOOD CELL COUNT DECREASED [None]
